FAERS Safety Report 10463486 (Version 1)
Quarter: 2014Q3

REPORT INFORMATION
  Report Type: Spontaneous
  Country: US (occurrence: None)
  Receive Date: 20140917
  Receipt Date: 20140917
  Transmission Date: 20150326
  Serious: Yes (Death, Hospitalization)
  Sender: FDA-Public Use
  Company Number: IPC201409-000468

PATIENT
  Age: 53 Year
  Sex: Male

DRUGS (6)
  1. DILTIAZEM [Suspect]
     Active Substance: DILTIAZEM
  2. FLUOXETINE [Concomitant]
     Active Substance: FLUOXETINE\FLUOXETINE HYDROCHLORIDE
  3. WARFARIN [Concomitant]
     Active Substance: WARFARIN
  4. LORAZEPAM. [Concomitant]
     Active Substance: LORAZEPAM
  5. OLMESARTAN [Concomitant]
     Active Substance: OLMESARTAN
  6. PROPRANOLOL HYDROCHLORIDE. [Suspect]
     Active Substance: PROPRANOLOL HYDROCHLORIDE

REACTIONS (11)
  - Bradycardia [None]
  - Atrioventricular block complete [None]
  - Cardiac arrest [None]
  - Electrocardiogram QRS complex shortened [None]
  - Myocardial ischaemia [None]
  - Exposure via ingestion [None]
  - Hypoxia [None]
  - Hypotension [None]
  - Respiratory failure [None]
  - Intentional overdose [None]
  - Coronary artery stenosis [None]
